FAERS Safety Report 7994888-5 (Version None)
Quarter: 2011Q4

REPORT INFORMATION
  Report Type: 
  Country: None (occurrence: None)
  Receive Date: 20111220
  Receipt Date: 20111212
  Transmission Date: 20120403
  Serious: Yes (Other)
  Sender: FDA-Public Use
  Company Number: US-SANOFI-AVENTIS-2011SA082224

PATIENT
  Age: 67 Year
  Sex: Male

DRUGS (2)
  1. LANTUS [Suspect]
  2. LANTUS [Suspect]
     Dosage: 30-40 UNITS DAILY
     Route: 058

REACTIONS (4)
  - BLOOD GLUCOSE INCREASED [None]
  - MEMORY IMPAIRMENT [None]
  - HEPATIC ENCEPHALOPATHY [None]
  - BILIARY TRACT DISORDER [None]
